FAERS Safety Report 8160307-1 (Version None)
Quarter: 2012Q1

REPORT INFORMATION
  Report Type: 
  Country: None (occurrence: None)
  Receive Date: 20120223
  Receipt Date: 20120223
  Transmission Date: 20120608
  Serious: Yes (Other)
  Sender: FDA-Public Use
  Company Number: None

PATIENT
  Age: 28 Year
  Sex: Male
  Weight: 72.574 kg

DRUGS (2)
  1. IBUPROFEN [Concomitant]
     Route: 048
  2. NUCYNTA ER [Suspect]
     Indication: MUSCULOSKELETAL PAIN
     Dosage: 250 MG
     Route: 048
     Dates: start: 20120210, end: 20120211

REACTIONS (7)
  - TACHYCARDIA [None]
  - EXTRASYSTOLES [None]
  - AGITATION [None]
  - IRRITABILITY [None]
  - PARANOIA [None]
  - AMNESIA [None]
  - ANXIETY [None]
